FAERS Safety Report 8519344-7 (Version None)
Quarter: 2012Q3

REPORT INFORMATION
  Report Type: 
  Country: None (occurrence: None)
  Receive Date: 20120718
  Receipt Date: 20120711
  Transmission Date: 20120928
  Serious: Yes (Other)
  Sender: FDA-Public Use
  Company Number: US-UCBSA-061567

PATIENT
  Age: 55 Year
  Sex: Female
  Weight: 70.76 kg

DRUGS (4)
  1. HUMIRA [Concomitant]
  2. PREDNISONE [Concomitant]
     Indication: RHEUMATOID ARTHRITIS
     Dosage: 5-15 MG PER DAY
     Route: 048
     Dates: start: 20120606
  3. CIMZIA [Suspect]
     Indication: RHEUMATOID ARTHRITIS
     Dates: start: 20120625, end: 20120626
  4. SULFASALAZINE [Concomitant]
     Indication: RHEUMATOID ARTHRITIS
     Route: 048
     Dates: start: 20120101

REACTIONS (2)
  - PHARYNGEAL OEDEMA [None]
  - PARAESTHESIA ORAL [None]
